FAERS Safety Report 7555666-4 (Version None)
Quarter: 2011Q2

REPORT INFORMATION
  Report Type: 
  Country: None (occurrence: None)
  Receive Date: 20110617
  Receipt Date: 20080613
  Transmission Date: 20111010
  Serious: Yes (Death, Hospitalization)
  Sender: FDA-Public Use
  Company Number: PHHY2008CA08525

PATIENT
  Sex: Female

DRUGS (2)
  1. SANDOSTATIN LAR [Suspect]
     Indication: ACROMEGALY
     Dosage: 20 MG, EVERY 4 WEEKS
     Route: 030
     Dates: start: 20070901, end: 20080517
  2. MORPHINE [Concomitant]

REACTIONS (4)
  - PAIN [None]
  - BLOOD GLUCOSE DECREASED [None]
  - DEATH [None]
  - CLAVICLE FRACTURE [None]
